FAERS Safety Report 4630138-5 (Version None)
Quarter: 2005Q2

REPORT INFORMATION
  Report Type: 
  Country: None (occurrence: None)
  Receive Date: 20050408
  Receipt Date: 20050329
  Transmission Date: 20051028
  Serious: Yes (Other)
  Sender: FDA-Public Use
  Company Number: HCM-0049

PATIENT
  Sex: Male

DRUGS (8)
  1. HYCAMTIN [Suspect]
     Route: 042
     Dates: start: 20040705
  2. CARBOPLATIN [Concomitant]
     Route: 042
  3. POTASSIUM CHLORIDE [Concomitant]
     Route: 042
     Dates: start: 20040705, end: 20040711
  4. POTASSIUM CHLORIDE [Concomitant]
     Route: 048
     Dates: start: 20040712, end: 20041013
  5. LEVOFLOXACIN [Concomitant]
     Indication: SYSTEMIC ANTIBACTERIAL THERAPY
     Dosage: 100MG PER DAY
     Route: 048
     Dates: start: 20040716, end: 20040720
  6. UNKNOWN DRUG [Concomitant]
     Dosage: 3AMP PER DAY
     Route: 042
     Dates: start: 20040705, end: 20040711
  7. LOXOPROFEN SODIUM [Concomitant]
     Dosage: 1TAB PER DAY
     Route: 048
     Dates: start: 20040924, end: 20040924
  8. TEPRENONE [Concomitant]
     Indication: PROPHYLAXIS
     Dosage: 1CAP PER DAY
     Route: 048
     Dates: start: 20040924, end: 20040924

REACTIONS (7)
  - BLOOD LACTATE DEHYDROGENASE INCREASED [None]
  - DIZZINESS POSTURAL [None]
  - MALAISE [None]
  - NEUTROPHIL COUNT DECREASED [None]
  - OEDEMA PERIPHERAL [None]
  - PLATELET COUNT DECREASED [None]
  - WHITE BLOOD CELL COUNT DECREASED [None]
